FAERS Safety Report 12391549 (Version 1)
Quarter: 2016Q2

REPORT INFORMATION
  Report Type: Spontaneous
  Country: GB (occurrence: GB)
  Receive Date: 20160521
  Receipt Date: 20160521
  Transmission Date: 20160815
  Serious: Yes (Disabling)
  Sender: FDA-Public Use
  Company Number: GB-AUROBINDO-AUR-APL-2016-06068

PATIENT
  Age: 38 Year
  Sex: Female
  Weight: 85 kg

DRUGS (4)
  1. AMLODIPINE [Concomitant]
     Active Substance: AMLODIPINE BESYLATE
     Indication: HYPERTENSION
     Dosage: 10 MG, UNK
     Route: 048
     Dates: start: 20150805
  2. AMITRIPTYLINE [Concomitant]
     Active Substance: AMITRIPTYLINE
     Indication: PRODUCT USED FOR UNKNOWN INDICATION
     Dosage: DOSE WAS PLANNED TO  REDUCE TO 50MG NOCTE 2 DAYS A WEEK,THEN 25 MG NOCTE 5 DAYS A WEEK ON 29.01.2016
     Route: 048
     Dates: start: 20160104, end: 20160131
  3. RAMIPRIL. [Concomitant]
     Active Substance: RAMIPRIL
     Indication: HYPERTENSION
     Dosage: 10 MG, UNK
     Route: 048
     Dates: start: 20150814
  4. PAROXETINE 20MG [Suspect]
     Active Substance: PAROXETINE
     Indication: FIBROMYALGIA
     Dosage: 20 MG, UNK
     Route: 048
     Dates: start: 20160131, end: 20160201

REACTIONS (4)
  - Feeling hot [Recovered/Resolved]
  - Tachycardia [Recovered/Resolved]
  - Myoclonus [Recovered/Resolved]
  - Product use issue [Recovered/Resolved]

NARRATIVE: CASE EVENT DATE: 20160131
